FAERS Safety Report 9669876 (Version 1)
Quarter: 2013Q4

REPORT INFORMATION
  Report Type: Report from Study
  Country: KR (occurrence: KR)
  Receive Date: 20131105
  Receipt Date: 20131105
  Transmission Date: 20140711
  Serious: No
  Sender: FDA-Public Use
  Company Number: PHHY2013KR124217

PATIENT
  Age: 60 Year
  Sex: Female

DRUGS (2)
  1. AMN107 [Suspect]
     Indication: CHRONIC MYELOID LEUKAEMIA
     Dosage: 600 MG, PER DAY
     Route: 048
     Dates: start: 20121002
  2. COUGH SYRUP [Concomitant]
     Indication: UPPER RESPIRATORY TRACT INFECTION
     Dosage: 60 ML, UNK
     Route: 048
     Dates: start: 20121227, end: 20130101

REACTIONS (3)
  - Pain of skin [Recovered/Resolved]
  - Ecchymosis [Recovered/Resolved]
  - Rash [Not Recovered/Not Resolved]
